FAERS Safety Report 9255064 (Version 1)
Quarter: 2013Q2

REPORT INFORMATION
  Report Type: Spontaneous
  Country: US (occurrence: US)
  Receive Date: 20130425
  Receipt Date: 20130425
  Transmission Date: 20140414
  Serious: Yes (Death)
  Sender: FDA-Public Use
  Company Number: US-JNJFOC-20051206213

PATIENT
  Age: 42 Year
  Sex: Female
  Weight: 91.63 kg

DRUGS (25)
  1. DURAGESIC [Suspect]
     Indication: PAIN
     Route: 062
     Dates: start: 20031204
  2. DURAGESIC [Suspect]
     Indication: PAIN
     Route: 062
     Dates: start: 20001013
  3. DURAGESIC [Suspect]
     Indication: PAIN
     Route: 062
     Dates: start: 20000927
  4. DURAGESIC [Suspect]
     Indication: PAIN
     Route: 062
     Dates: start: 20020114
  5. DURAGESIC [Suspect]
     Indication: PAIN
     Route: 062
     Dates: start: 200010
  6. DURAGESIC [Suspect]
     Indication: PAIN
     Route: 062
     Dates: start: 2002
  7. DURAGESIC [Suspect]
     Indication: PAIN
     Route: 062
     Dates: start: 2001
  8. MYLAN FENTANYL TRANSDERMAL SYSTEM [Suspect]
     Indication: PRODUCT USED FOR UNKNOWN INDICATION
     Route: 062
  9. METHADONE [Suspect]
     Indication: ABDOMINAL PAIN
     Dosage: 10MG/ML,1 ML, ORAL CONCENTRATED
     Route: 048
     Dates: start: 19961031
  10. PROMETHAZINE [Suspect]
     Indication: PRODUCT USED FOR UNKNOWN INDICATION
     Route: 048
     Dates: start: 20001111
  11. PROMETHAZINE [Suspect]
     Indication: PRODUCT USED FOR UNKNOWN INDICATION
     Route: 048
     Dates: start: 20001212
  12. OXYFAST [Concomitant]
     Dosage: 20 MG/CC 1 CC SUBLINGUALLY EVERY 4 HOURS
     Route: 060
  13. CLONAZEPAM [Concomitant]
  14. LASIX [Concomitant]
     Route: 048
  15. NEURONTIN [Concomitant]
     Route: 048
  16. FLUOXETINE [Concomitant]
     Route: 048
  17. BENADRYL [Concomitant]
     Dosage: 25MG TABLET, 1 TO 2 PER ORAL EVERY NIGHT
     Route: 048
  18. POTASSIUM CHLORIDE [Concomitant]
     Route: 048
  19. ACIPHEX [Concomitant]
     Route: 048
  20. GLUCOSAMINE [Concomitant]
  21. IMIPRAMINE [Concomitant]
     Dosage: 50MG TABLET, PER ORAL EVERY NIGHT
     Route: 048
  22. CELEBREX [Concomitant]
     Route: 048
  23. ESTRACE [Concomitant]
     Route: 048
  24. HUMALOG [Concomitant]
     Dosage: 100U/ML, VIAL 1 UNIT SUBCUTANEOUS AS DIRECTED
     Route: 058
  25. LANTUS [Concomitant]
     Dosage: 100U/ML, VIAL, SUBCANTANEOUS, 10 UNITS, EVERY NIGHT
     Route: 058

REACTIONS (3)
  - Toxicity to various agents [Fatal]
  - Device leakage [Fatal]
  - Inappropriate schedule of drug administration [Unknown]
